FAERS Safety Report 9174993 (Version 1)
Quarter: 2013Q1

REPORT INFORMATION
  Report Type: Report from Study
  Country: JP (occurrence: JP)
  Receive Date: 20130320
  Receipt Date: 20130320
  Transmission Date: 20140127
  Serious: Yes (Disabling)
  Sender: FDA-Public Use
  Company Number: JP-GLAXOSMITHKLINE-B0848861A

PATIENT
  Age: 51 Year
  Sex: Female
  Weight: 51 kg

DRUGS (2)
  1. TYKERB [Suspect]
     Indication: BREAST CANCER
     Route: 048
     Dates: start: 20101008, end: 20110901
  2. XELODA [Concomitant]
     Route: 048
     Dates: start: 20101008, end: 20101119

REACTIONS (2)
  - Paronychia [Recovered/Resolved]
  - Excessive granulation tissue [Unknown]
